FAERS Safety Report 26131334 (Version 1)
Quarter: 2025Q4

REPORT INFORMATION
  Report Type: Spontaneous
  Country: US (occurrence: US)
  Receive Date: 20251208
  Receipt Date: 20251208
  Transmission Date: 20260118
  Serious: Yes (Other)
  Sender: AMGEN
  Company Number: US-AMGEN-USASP2025240476

PATIENT

DRUGS (4)
  1. ETANERCEPT [Suspect]
     Active Substance: ETANERCEPT
     Indication: Psoriasis
     Dosage: UNK
     Route: 065
  2. ETANERCEPT [Suspect]
     Active Substance: ETANERCEPT
     Indication: Psoriatic arthropathy
  3. RITUXIMAB [Suspect]
     Active Substance: RITUXIMAB
     Indication: Immunosuppression
     Route: 065
  4. RITUXIMAB [Suspect]
     Active Substance: RITUXIMAB
     Indication: Off label use

REACTIONS (13)
  - Encephalitis autoimmune [Unknown]
  - Epilepsy [Unknown]
  - Prostate cancer [Unknown]
  - Hypothyroidism [Unknown]
  - Adenocarcinoma [Unknown]
  - Anti-neutrophil cytoplasmic antibody positive vasculitis [Unknown]
  - Seizure [Unknown]
  - Autoimmune hepatitis [Unknown]
  - Malignant melanoma [Unknown]
  - Vitiligo [Unknown]
  - Neuropsychological symptoms [Unknown]
  - Off label use [Unknown]
  - Cognitive disorder [Unknown]
